FAERS Safety Report 8434226-7 (Version None)
Quarter: 2012Q2

REPORT INFORMATION
  Report Type: 
  Country: None (occurrence: None)
  Receive Date: 20120613
  Receipt Date: 20120609
  Transmission Date: 20120825
  Serious: Yes (Hospitalization)
  Sender: FDA-Public Use
  Company Number: PHHY2012US049482

PATIENT
  Age: 63 Year
  Sex: Female

DRUGS (8)
  1. BASILIXIMAB [Suspect]
     Indication: IMMUNOSUPPRESSION
  2. MYCOPHENOLATE MOFETIL [Suspect]
     Indication: IMMUNOSUPPRESSION
  3. VALGANCICLOVIR [Concomitant]
  4. PREDNISONE TAB [Suspect]
     Indication: IMMUNOSUPPRESSION
  5. TRIMETHOPRIM [Concomitant]
  6. SULFAMETHOXAZOLE [Concomitant]
  7. SIROLIMUS [Suspect]
  8. FLUCONAZOLE [Concomitant]
     Dosage: 200 MG,DAILY

REACTIONS (4)
  - PYREXIA [None]
  - NAUSEA [None]
  - LUNG NEOPLASM [None]
  - VOMITING [None]
